FAERS Safety Report 13581083 (Version 1)
Quarter: 2017Q2

REPORT INFORMATION
  Report Type: Spontaneous
  Country: US (occurrence: US)
  Receive Date: 20170525
  Receipt Date: 20170525
  Transmission Date: 20170830
  Serious: No
  Sender: FDA-Public Use
  Company Number: US-PFIZER INC-2017226863

PATIENT
  Age: 48 Year
  Weight: 100 kg

DRUGS (1)
  1. VIAGRA [Suspect]
     Active Substance: SILDENAFIL CITRATE
     Indication: ERECTILE DYSFUNCTION
     Dosage: 25 MG, 1X/DAY (EVERY NIGHT)

REACTIONS (3)
  - Erection increased [Unknown]
  - Ejaculation disorder [Unknown]
  - Intentional product misuse [Unknown]
